FAERS Safety Report 18640327 (Version 1)
Quarter: 2020Q4

REPORT INFORMATION
  Report Type: Spontaneous
  Country: BR (occurrence: BR)
  Receive Date: 20201220
  Receipt Date: 20201220
  Transmission Date: 20210114
  Serious: Yes (Other)
  Sender: FDA-Public Use
  Company Number: BR-CELLTRION INC.-2020BR033418

PATIENT

DRUGS (7)
  1. REMSIMA [Suspect]
     Active Substance: INFLIXIMAB
     Dosage: UNK (ROUTE: ENDOVENOUS)
     Dates: start: 20201203
  2. ATENOLOL. [Concomitant]
     Active Substance: ATENOLOL
     Indication: HYPERTENSION
     Dosage: 2 TABLETS PER DAY IN THE MORNING AND NIGHT (FOR ABOUT 20 YEARS)
     Route: 048
  3. GLIFAGE [Concomitant]
     Active Substance: METFORMIN HYDROCHLORIDE
     Indication: PRODUCT USED FOR UNKNOWN INDICATION
     Dosage: 2 TABLETS PER DAY IN THE AFTERNOON AND NIGHT (FOR ABOUT 20 YEARS)
     Route: 048
  4. HYDRALAZINE [Concomitant]
     Active Substance: HYDRALAZINE HYDROCHLORIDE
     Indication: HYPERTENSION
     Dosage: 1 TABLET PER DAY (FOR ABOUT 20 YEARS)
     Route: 048
  5. LEFLUNOMIDA [Concomitant]
     Active Substance: LEFLUNOMIDE
     Indication: RHEUMATOID ARTHRITIS
     Dosage: 1 TABLET A DAY
     Dates: start: 2014
  6. LOSARTAN. [Concomitant]
     Active Substance: LOSARTAN
     Indication: HYPERTENSION
     Dosage: 2 TABLETS PER DAY IN THE MORNING AND NIGHT (FOR ABOUT 20 YEARS)
     Route: 048
  7. REMSIMA [Suspect]
     Active Substance: INFLIXIMAB
     Indication: RHEUMATOID ARTHRITIS
     Dosage: 200 MG (2 BOTTLES OF 100 MG) EVERY 6 WEEKS VIA ENDOVENOUS ROUTE (ABOUT 2 YEARS AGO TO 08OCT2020)

REACTIONS (5)
  - Off label use [Unknown]
  - Pain in extremity [Recovered/Resolved]
  - Arthralgia [Recovered/Resolved]
  - Product dose omission issue [Unknown]
  - Muscle rigidity [Recovered/Resolved]

NARRATIVE: CASE EVENT DATE: 20201123
